FAERS Safety Report 6632316-2 (Version None)
Quarter: 2010Q1

REPORT INFORMATION
  Report Type: 
  Country: None (occurrence: None)
  Receive Date: 20100312
  Receipt Date: 20100305
  Transmission Date: 20100710
  Serious: No
  Sender: FDA-Public Use
  Company Number: B0631693A

PATIENT
  Sex: Female
  Weight: 30 kg

DRUGS (2)
  1. RELENZA [Suspect]
     Indication: INFLUENZA
     Dosage: 5MG TWICE PER DAY
     Route: 055
     Dates: start: 20100202, end: 20100203
  2. CALONAL [Suspect]
     Dosage: 200MG TWICE PER DAY
     Route: 048
     Dates: start: 20100202, end: 20100203

REACTIONS (2)
  - ABNORMAL BEHAVIOUR [None]
  - RESTLESSNESS [None]
